FAERS Safety Report 16682839 (Version 1)
Quarter: 2019Q3

REPORT INFORMATION
  Report Type: Spontaneous
  Country: US (occurrence: US)
  Receive Date: 20190807
  Receipt Date: 20190807
  Transmission Date: 20191004
  Serious: Yes (Hospitalization)
  Sender: FDA-Public Use
  Company Number: None

PATIENT
  Sex: Male

DRUGS (7)
  1. HYDROCHLOROT [Concomitant]
     Active Substance: HYDROCHLOROTHIAZIDE
     Dates: start: 20181108
  2. COLESTIPOL [Concomitant]
     Active Substance: COLESTIPOL
     Dates: start: 20190806
  3. LISINOPRIL. [Concomitant]
     Active Substance: LISINOPRIL
     Dates: start: 20181108
  4. CICLOPIPROX GEL [Concomitant]
     Dates: start: 20190806
  5. KETOCONAZOLE. [Concomitant]
     Active Substance: KETOCONAZOLE
     Dates: start: 20190806
  6. KLONOPIN [Concomitant]
     Active Substance: CLONAZEPAM
     Dates: start: 20181108
  7. HUMIRA [Suspect]
     Active Substance: ADALIMUMAB
     Indication: COLITIS
     Dosage: ?          OTHER FREQUENCY:ONCE A WEEK;?
     Route: 058
     Dates: start: 20181109

REACTIONS (7)
  - Nail operation [None]
  - Diarrhoea [None]
  - Lethargy [None]
  - Anxiety [None]
  - Cholecystectomy [None]
  - Fungal skin infection [None]
  - Fatigue [None]
